FAERS Safety Report 23069705 (Version 2)
Quarter: 2023Q4

REPORT INFORMATION
  Report Type: Report from Study
  Country: FR (occurrence: FR)
  Receive Date: 20231016
  Receipt Date: 20231020
  Transmission Date: 20240109
  Serious: Yes (Life-Threatening, Other)
  Sender: FDA-Public Use
  Company Number: FR-002147023-NVSC2023FR221548

PATIENT
  Sex: Female
  Weight: 70 kg

DRUGS (9)
  1. LUTATHERA [Suspect]
     Active Substance: LUTETIUM OXODOTREOTIDE LU-177
     Indication: Small intestine neuroendocrine tumour
     Dosage: 21548 MBQ (INJECTION) (ACTIVITY INCREASED)
     Route: 042
     Dates: start: 20230117, end: 20230511
  2. LANREOTIDE ACETATE [Concomitant]
     Active Substance: LANREOTIDE ACETATE
     Indication: Small intestine neuroendocrine tumour
     Dosage: 120 MG, BID
     Route: 030
     Dates: start: 2018
  3. URSODIOL [Concomitant]
     Active Substance: URSODIOL
     Indication: Small intestinal resection
     Dosage: 2 X 250 MG, BID
     Route: 048
     Dates: start: 202306
  4. PADERYL [Concomitant]
     Indication: Diarrhoea
     Dosage: 3 X 19.5 MG, TID
     Route: 048
     Dates: start: 202306
  5. LOPERAMIDE [Concomitant]
     Active Substance: LOPERAMIDE
     Indication: Diarrhoea
     Dosage: 3 DOSAGE FORM, TID
     Route: 048
     Dates: start: 202306
  6. METFORMIN PAMOATE [Concomitant]
     Active Substance: METFORMIN PAMOATE
     Indication: Diabetes mellitus
     Dosage: 700 MG, BID
     Route: 048
     Dates: start: 2022
  7. LANSOPRAZOLE [Concomitant]
     Active Substance: LANSOPRAZOLE
     Indication: Product used for unknown indication
     Dosage: 30 MG, QD
     Route: 048
  8. REPAGLINIDE [Concomitant]
     Active Substance: REPAGLINIDE
     Indication: Product used for unknown indication
     Dosage: 3 MG, BID (IN THE MORNING, IN THE EVENING)
     Route: 065
  9. REPAGLINIDE [Concomitant]
     Active Substance: REPAGLINIDE
     Dosage: 2 MG, QD (AT NOON)
     Route: 065

REACTIONS (1)
  - Neutropenia [Recovered/Resolved]

NARRATIVE: CASE EVENT DATE: 20230830
